FAERS Safety Report 4891229-7 (Version None)
Quarter: 2006Q1

REPORT INFORMATION
  Report Type: 
  Country: None (occurrence: None)
  Receive Date: 20060120
  Receipt Date: 20060116
  Transmission Date: 20060701
  Serious: Yes (Other)
  Sender: FDA-Public Use
  Company Number: 200610012GDS

PATIENT
  Age: 40 Year
  Sex: Female

DRUGS (1)
  1. CANESTEN              (CLOTRIMAZOLE) [Suspect]
     Dosage: 500 G, QD; VAGINAL
     Route: 067
     Dates: start: 20051216

REACTIONS (3)
  - EYE OEDEMA [None]
  - GENERALISED OEDEMA [None]
  - PROTEIN URINE [None]
